FAERS Safety Report 18401403 (Version 3)
Quarter: 2020Q4

REPORT INFORMATION
  Report Type: Spontaneous
  Country: NZ (occurrence: NZ)
  Receive Date: 20201019
  Receipt Date: 20201211
  Transmission Date: 20210114
  Serious: Yes (Other)
  Sender: FDA-Public Use
  Company Number: NZ-MYLANLABS-2020M1074244

PATIENT
  Age: 60 Year
  Sex: Male

DRUGS (1)
  1. CLOZARIL [Suspect]
     Active Substance: CLOZAPINE
     Indication: SCHIZOPHRENIA
     Dosage: UNK
     Route: 048
     Dates: start: 20130123

REACTIONS (6)
  - Neutrophil count increased [Not Recovered/Not Resolved]
  - Neutrophil count decreased [Recovering/Resolving]
  - Pharyngitis [Unknown]
  - White blood cell count decreased [Unknown]
  - Oropharyngeal pain [Unknown]
  - White blood cell count increased [Not Recovered/Not Resolved]

NARRATIVE: CASE EVENT DATE: 20200821
